FAERS Safety Report 8507723-3 (Version None)
Quarter: 2012Q3

REPORT INFORMATION
  Report Type: 
  Country: None (occurrence: None)
  Receive Date: 20120709
  Receipt Date: 20120709
  Transmission Date: 20120928
  Serious: No
  Sender: FDA-Public Use
  Company Number: None

PATIENT

DRUGS (2)
  1. ACETAMINOPHEN [Suspect]
     Dosage: TABLET ORAL
     Route: 048
  2. VICODIN [Suspect]
     Dosage: ORAL 5/500
     Route: 048

REACTIONS (6)
  - BRAIN DEATH [None]
  - MEDICATION ERROR [None]
  - INCORRECT DOSE ADMINISTERED [None]
  - HEPATIC ENCEPHALOPATHY [None]
  - HEPATIC FAILURE [None]
  - ABDOMINAL PAIN UPPER [None]
